FAERS Safety Report 7717142-5 (Version None)
Quarter: 2011Q3

REPORT INFORMATION
  Report Type: 
  Country: None (occurrence: None)
  Receive Date: 20110826
  Receipt Date: 20110826
  Transmission Date: 20111222
  Serious: Yes (Other)
  Sender: FDA-Public Use
  Company Number: None

PATIENT
  Age: 88 Year
  Sex: Female
  Weight: 96.1 kg

DRUGS (1)
  1. LINEZOLID [Suspect]
     Indication: URINARY TRACT INFECTION
     Dosage: 600 MG BID PO
     Route: 048
     Dates: start: 20110715, end: 20110719

REACTIONS (2)
  - LETHARGY [None]
  - MENTAL STATUS CHANGES [None]
